FAERS Safety Report 20710135 (Version 1)
Quarter: 2022Q2

REPORT INFORMATION
  Report Type: Spontaneous
  Country: US (occurrence: US)
  Receive Date: 20220414
  Receipt Date: 20220414
  Transmission Date: 20220721
  Serious: No
  Sender: FDA-Public Use
  Company Number: US-PFIZER INC-202100930646

PATIENT
  Age: 63 Year
  Sex: Female
  Weight: 48.08 kg

DRUGS (2)
  1. CHANTIX [Suspect]
     Active Substance: VARENICLINE TARTRATE
     Indication: Smoking cessation therapy
     Dosage: 0.5MG X 11 TABLETS AND THEN 3 CONTINUING WEEKS OF 1MG OF 42 TABLETS
     Route: 048
     Dates: start: 20210611, end: 20210618
  2. ASPIRIN [Concomitant]
     Active Substance: ASPIRIN

REACTIONS (5)
  - Product dose omission issue [Unknown]
  - Recalled product administered [Unknown]
  - Eating disorder [Recovering/Resolving]
  - Insomnia [Recovering/Resolving]
  - Weight decreased [Recovering/Resolving]

NARRATIVE: CASE EVENT DATE: 20210101
